FAERS Safety Report 17967382 (Version 1)
Quarter: 2020Q3

REPORT INFORMATION
  Report Type: Spontaneous
  Country: DE (occurrence: DE)
  Receive Date: 20200701
  Receipt Date: 20200701
  Transmission Date: 20201103
  Serious: Yes (Hospitalization, Other)
  Sender: FDA-Public Use
  Company Number: DE-TEVA-2020-DE-1792654

PATIENT
  Age: 72 Year
  Sex: Male

DRUGS (1)
  1. VALSARTAN ABZ 80 MG [Suspect]
     Active Substance: VALSARTAN
     Indication: HYPERTENSION
     Dosage: 160 MILLIGRAM DAILY; 1?0?1
     Route: 048
     Dates: start: 201712, end: 2018

REACTIONS (2)
  - Gastric cancer stage I [Unknown]
  - Product impurity [Unknown]

NARRATIVE: CASE EVENT DATE: 202001
